FAERS Safety Report 18456100 (Version 1)
Quarter: 2020Q4

REPORT INFORMATION
  Report Type: Spontaneous
  Country: US (occurrence: US)
  Receive Date: 20201103
  Receipt Date: 20201103
  Transmission Date: 20210114
  Serious: Yes (Hospitalization, Other)
  Sender: FDA-Public Use
  Company Number: US-AMGEN-USASP2020174540

PATIENT
  Age: 42 Year
  Sex: Female

DRUGS (2)
  1. NATALIZUMAB [Suspect]
     Active Substance: NATALIZUMAB
     Indication: RELAPSING-REMITTING MULTIPLE SCLEROSIS
     Route: 065
  2. FILGRASTIM [Suspect]
     Active Substance: FILGRASTIM
     Indication: PROGRESSIVE MULTIFOCAL LEUKOENCEPHALOPATHY
     Dosage: 5 MILLIGRAM/KILOGRAM FOR 5 DAYS
     Route: 065

REACTIONS (5)
  - Immune reconstitution inflammatory syndrome [Unknown]
  - Brain oedema [Recovering/Resolving]
  - Off label use [Unknown]
  - Brain midline shift [Recovering/Resolving]
  - Brain herniation [Recovering/Resolving]
